FAERS Safety Report 13779291 (Version 2)
Quarter: 2017Q4

REPORT INFORMATION
  Report Type: Report from Study
  Country: US (occurrence: US)
  Receive Date: 20170721
  Receipt Date: 20171005
  Transmission Date: 20180320
  Serious: Yes (Other)
  Sender: FDA-Public Use
  Company Number: PHEH2017US022086

PATIENT
  Age: 57 Year
  Sex: Female

DRUGS (1)
  1. KISQALI [Suspect]
     Active Substance: RIBOCICLIB
     Indication: PRODUCT USED FOR UNKNOWN INDICATION
     Dosage: UNK
     Route: 065
     Dates: start: 20170616

REACTIONS (4)
  - Blood phosphorus increased [Unknown]
  - Blood glucose decreased [Unknown]
  - Blood potassium increased [Unknown]
  - Rash pruritic [Unknown]

NARRATIVE: CASE EVENT DATE: 20170712
